FAERS Safety Report 16741006 (Version 1)
Quarter: 2019Q4

REPORT INFORMATION
  Report Type: Spontaneous
  Country: US (occurrence: US)
  Receive Date: 20190826
  Receipt Date: 20190826
  Transmission Date: 20200122
  Serious: Yes (Disabling)
  Sender: FDA-Public Use
  Company Number: None

PATIENT
  Age: 25 Year
  Sex: Female

DRUGS (1)
  1. DEPO-MEDROL [Suspect]
     Active Substance: METHYLPREDNISOLONE ACETATE
     Indication: PAIN
     Dosage: ?          QUANTITY:2 INJECTION(S);?
     Route: 008

REACTIONS (2)
  - Blindness unilateral [None]
  - Optic neuritis [None]

NARRATIVE: CASE EVENT DATE: 20170801
